FAERS Safety Report 11769695 (Version 1)
Quarter: 2015Q4

REPORT INFORMATION
  Report Type: Spontaneous
  Country: US (occurrence: None)
  Receive Date: 20151123
  Receipt Date: 20151123
  Transmission Date: 20160304
  Serious: Yes (Hospitalization, Other)
  Sender: FDA-Public Use
  Company Number: ADR-2015-01282

PATIENT
  Age: 35 Year
  Sex: Female

DRUGS (2)
  1. COMPOUNDED BACLOFEN INTRATHEL 2200 MCG/ML [Suspect]
     Active Substance: BACLOFEN
     Indication: PAIN
     Dosage: 360.2MCG/DAY
  2. MORPHINE INTRATHECAL [Suspect]
     Active Substance: MORPHINE
     Indication: PAIN

REACTIONS (4)
  - Drug withdrawal syndrome [None]
  - Incorrect drug administration rate [None]
  - Seizure [None]
  - Therapeutic response decreased [None]
